FAERS Safety Report 8561380-9 (Version None)
Quarter: 2012Q3

REPORT INFORMATION
  Report Type: 
  Country: None (occurrence: None)
  Receive Date: 20120802
  Receipt Date: 20120723
  Transmission Date: 20120928
  Serious: Yes (Hospitalization)
  Sender: FDA-Public Use
  Company Number: US-GLAXOSMITHKLINE-A0809149A

PATIENT
  Age: 68 Year
  Sex: Female
  Weight: 106.8 kg

DRUGS (9)
  1. BONIVA [Concomitant]
  2. LISINOPRIL [Concomitant]
  3. CRESTOR [Concomitant]
  4. LANTUS [Concomitant]
  5. ZETIA [Concomitant]
  6. HYDROXYCHLOROQUINE SULFATE [Concomitant]
  7. PREVACID [Concomitant]
  8. AVANDIA [Suspect]
     Indication: DIABETES MELLITUS
     Dosage: 4MG TWICE PER DAY
     Route: 048
     Dates: start: 20000101, end: 20071009
  9. SINEMET [Concomitant]

REACTIONS (4)
  - CARDIAC FAILURE CONGESTIVE [None]
  - CORONARY ARTERY DISEASE [None]
  - SCAPULA FRACTURE [None]
  - MYOCARDIAL INFARCTION [None]
